FAERS Safety Report 16320141 (Version 1)
Quarter: 2019Q2

REPORT INFORMATION
  Report Type: Spontaneous
  Country: US (occurrence: US)
  Receive Date: 20190410
  Receipt Date: 20190410
  Transmission Date: 20190711
  Serious: No
  Sender: FDA-Public Use
  Company Number: None

PATIENT
  Age: 93 Year
  Sex: Male

DRUGS (9)
  1. JANUVIA [Concomitant]
     Active Substance: SITAGLIPTIN PHOSPHATE
  2. OXYBUTYNIN. [Concomitant]
     Active Substance: OXYBUTYNIN CHLORIDE
  3. NITROSTAT [Concomitant]
     Active Substance: NITROGLYCERIN
  4. MEMANTINE. [Concomitant]
     Active Substance: MEMANTINE
  5. SIMVASTATIN. [Concomitant]
     Active Substance: SIMVASTATIN
  6. ERLEADA [Suspect]
     Active Substance: APALUTAMIDE
     Indication: PROSTATE CANCER
     Route: 048
     Dates: start: 20190410
  7. MULTIVITAMIN [Concomitant]
     Active Substance: VITAMINS
  8. DONEPEZIL. [Concomitant]
     Active Substance: DONEPEZIL
  9. TAMSULOSIN [Concomitant]
     Active Substance: TAMSULOSIN

REACTIONS (2)
  - Off label use [None]
  - Drug interaction [None]
